FAERS Safety Report 8439534-1 (Version None)
Quarter: 2012Q2

REPORT INFORMATION
  Report Type: 
  Country: None (occurrence: None)
  Receive Date: 20120615
  Receipt Date: 20120608
  Transmission Date: 20120825
  Serious: Yes (Other)
  Sender: FDA-Public Use
  Company Number: US-B.I. PHARMACEUTICALS,INC./RIDGEFIELD-2012-BP-13337BP

PATIENT

DRUGS (4)
  1. PRADAXA [Suspect]
  2. ASPIRIN [Suspect]
  3. PLAVIX [Suspect]
  4. XARELTO [Suspect]
     Indication: ATRIAL FIBRILLATION
     Dosage: 15 MG
     Route: 048

REACTIONS (1)
  - POST PROCEDURAL HAEMATOMA [None]
